FAERS Safety Report 15231026 (Version 3)
Quarter: 2021Q3

REPORT INFORMATION
  Report Type: Spontaneous
  Country: US (occurrence: US)
  Receive Date: 20180802
  Receipt Date: 20210809
  Transmission Date: 20211014
  Serious: Yes (Other)
  Sender: FDA-Public Use
  Company Number: US-ACCORD-064211

PATIENT
  Age: 51 Year
  Sex: Female
  Weight: 111.13 kg

DRUGS (7)
  1. HERCEPTIN [Suspect]
     Active Substance: TRASTUZUMAB
     Indication: BREAST CANCER
  2. ARIMIDEX [Concomitant]
     Active Substance: ANASTROZOLE
     Dates: start: 2003, end: 2014
  3. DEXAMETHASONE. [Concomitant]
     Active Substance: DEXAMETHASONE
     Dosage: STRENGTH: 4 MG
  4. SYNTHROID [Concomitant]
     Active Substance: LEVOTHYROXINE SODIUM
     Dates: start: 2005
  5. PROCHLORPERAZINE. [Concomitant]
     Active Substance: PROCHLORPERAZINE
  6. PARAPLATIN [Suspect]
     Active Substance: CARBOPLATIN
     Indication: BREAST CANCER
     Dosage: NUMBER OF CYCLES: 06?EVERY THREE WEEKS
     Dates: start: 20140722, end: 20141202
  7. DOCETAXEL ACCORD [Suspect]
     Active Substance: DOCETAXEL
     Indication: BREAST CANCER
     Dosage: NUMBER OF CYCLES: 06?EVERY THREE WEEKS
     Dates: start: 20140722, end: 20141202

REACTIONS (1)
  - Alopecia [Not Recovered/Not Resolved]

NARRATIVE: CASE EVENT DATE: 20150602
